FAERS Safety Report 7085065-3 (Version None)
Quarter: 2010Q4

REPORT INFORMATION
  Report Type: 
  Country: None (occurrence: None)
  Receive Date: 20101105
  Receipt Date: 20101027
  Transmission Date: 20110411
  Serious: Yes (Death)
  Sender: FDA-Public Use
  Company Number: DE-BAYER-201038285GPV

PATIENT
  Age: 76 Year
  Sex: Male

DRUGS (9)
  1. NEXAVAR [Suspect]
     Indication: RENAL CELL CARCINOMA
     Route: 065
     Dates: start: 20100430, end: 20100829
  2. METOPROLOL [Concomitant]
     Dosage: DAILY DOSE: 1-0-1/2
  3. HYDROCHLOROTHIAZIDE [Concomitant]
     Dosage: DAILY DOSE: 1-0-0
     Route: 065
  4. TORASEMID [Concomitant]
     Dosage: DAILY DOSE: 1-0-0
     Route: 065
  5. PANTOPRAZOLE [Concomitant]
     Dosage: DAILY DOSE: 1-0-0
     Route: 065
  6. METAMIZOL [Concomitant]
     Dosage: DAILY DOSE: 1-1-1-1
     Route: 065
  7. MORPHINE SULFATE [Concomitant]
     Dosage: DAILY DOSE: 0-0-1
     Route: 065
  8. FRAXIPARIN [Concomitant]
     Dosage: TOTAL DAILY DOSE: 1-0-0
     Dates: start: 20100419
  9. PARACODIN BITARTRATE TAB [Concomitant]
     Dosage: TOTAL DAILY DOSE: 20-0-0
     Dates: start: 20100427

REACTIONS (1)
  - PNEUMONIA [None]
